FAERS Safety Report 8430568 (Version 2)
Quarter: 2012Q4

REPORT INFORMATION
  Report Type: 
  Country: JP (occurrence: JP)
  Receive Date: 20120228
  Receipt Date: 20121115
  Transmission Date: 20130627
  Serious: Yes (Death)
  Sender: FDA-Public Use
  Company Number: JP-ROCHE-1042980

PATIENT
  Age: 93 Year
  Sex: Female

DRUGS (2)
  1. TAMIFLU [Suspect]
     Indication: ANTIVIRAL PROPHYLAXIS
     Route: 048
     Dates: start: 20120217, end: 20120217
  2. NITROGLYCERIN [Concomitant]
     Indication: ANGINA PECTORIS
     Dosage: Dosage is uncertain.
     Route: 062

REACTIONS (2)
  - Hyperglycaemia [Fatal]
  - Diabetic coma [Fatal]
